FAERS Safety Report 9404625 (Version 1)
Quarter: 2013Q3

REPORT INFORMATION
  Report Type: Spontaneous
  Country: US (occurrence: None)
  Receive Date: 20130715
  Receipt Date: 20130715
  Transmission Date: 20140515
  Serious: Yes (Hospitalization)
  Sender: FDA-Public Use
  Company Number: DSU-2013-03929

PATIENT
  Age: 73 Year
  Sex: Male
  Weight: 95.26 kg

DRUGS (2)
  1. WELCHOL [Suspect]
     Indication: HYPERCHOLESTEROLAEMIA
     Route: 048
     Dates: start: 20130702, end: 20130704
  2. SYNTHROID [Concomitant]

REACTIONS (4)
  - Mood altered [None]
  - Agitation [None]
  - Fall [None]
  - Rib fracture [None]
